FAERS Safety Report 18812527 (Version 2)
Quarter: 2021Q1

REPORT INFORMATION
  Report Type: Spontaneous
  Country: GB (occurrence: GB)
  Receive Date: 20210130
  Receipt Date: 20210212
  Transmission Date: 20210419
  Serious: No
  Sender: FDA-Public Use
  Company Number: PHHY2019GB093817

PATIENT
  Age: 35 Year
  Sex: Female

DRUGS (45)
  1. PERTUZUMAB. [Suspect]
     Active Substance: PERTUZUMAB
     Indication: HER2 POSITIVE BREAST CANCER
     Dosage: 420 MILLIGRAM, Q3W(MAINTENANCE DOSE)
     Route: 042
     Dates: start: 20160811, end: 20171116
  2. XGEVA [Suspect]
     Active Substance: DENOSUMAB
     Indication: METASTASES TO BONE
  3. GLYCOPYRRONIUM [Concomitant]
     Active Substance: GLYCOPYRRONIUM
     Indication: DYSPNOEA
     Dosage: 200 MG
     Route: 058
  4. EPIRUBICIN [Concomitant]
     Active Substance: EPIRUBICIN
     Indication: BREAST CANCER METASTATIC
  5. VENLAFAXINE [Concomitant]
     Active Substance: VENLAFAXINE HYDROCHLORIDE
     Indication: ABDOMINAL PAIN
     Dosage: 75 MILLIGRAM, BID
     Route: 048
     Dates: start: 20201215
  6. BENZYDAMINE [Concomitant]
     Active Substance: BENZYDAMINE
     Indication: PRODUCT USED FOR UNKNOWN INDICATION
     Dosage: 0.15 %, QID
     Route: 048
  7. BECLOMETASONE [Concomitant]
     Active Substance: BECLOMETHASONE DIPROPIONATE
     Indication: PRODUCT USED FOR UNKNOWN INDICATION
     Dosage: 200 MG, BID
     Route: 055
  8. BECLOMETASONE [Concomitant]
     Active Substance: BECLOMETHASONE DIPROPIONATE
     Dosage: 200 MILLIGRAM, BID
     Route: 055
  9. OXYCODONE [Concomitant]
     Active Substance: OXYCODONE
     Indication: ABDOMINAL PAIN
     Dosage: 10 MG
     Route: 058
  10. DEXAMETHASONE. [Concomitant]
     Active Substance: DEXAMETHASONE
     Indication: ABDOMINAL PAIN
     Dosage: 6 MILLIGRAM, QD
     Route: 048
     Dates: start: 20201215
  11. LORAZEPAM. [Concomitant]
     Active Substance: LORAZEPAM
     Indication: ABDOMINAL PAIN
     Dosage: 1 MILLIGRAM, QD
     Route: 048
     Dates: start: 20201215
  12. LANSOPRAZOLE. [Concomitant]
     Active Substance: LANSOPRAZOLE
     Indication: ABDOMINAL PAIN
     Dosage: 30 MILLIGRAM, QD
     Route: 048
     Dates: start: 20201215
  13. DOCUSATE [Concomitant]
     Active Substance: DOCUSATE
     Indication: ABDOMINAL PAIN
     Dosage: 200 MILLIGRAM, BID
     Route: 048
     Dates: start: 20201215
  14. DOCETAXEL. [Suspect]
     Active Substance: DOCETAXEL
     Indication: BREAST CANCER METASTATIC
     Dosage: 105 MILLIGRAM, Q3W(DOSE MODIFIED DUE TO MUSCULOSKELETAL SYMPTOMS)
     Route: 042
     Dates: start: 20160723, end: 20160723
  15. DOCETAXEL. [Suspect]
     Active Substance: DOCETAXEL
     Indication: HER2 POSITIVE BREAST CANCER
     Dosage: 140 MILLIGRAM, Q3W(DISCONTINUED DUE TO MUSCULOSKELETAL SYMPTOMS)
     Route: 042
     Dates: start: 20160812, end: 20160812
  16. TRASTUZUMAB. [Suspect]
     Active Substance: TRASTUZUMAB
     Dosage: 441 MILLIGRAM, Q3W
     Route: 042
     Dates: start: 20161115, end: 20171116
  17. TRASTUZUMAB EMTANSINE [Suspect]
     Active Substance: ADO-TRASTUZUMAB EMTANSINE
     Indication: BREAST CANCER METASTATIC
     Dosage: 3.6 MILLIGRAM/SQ. METER, Q3W, 3.6 MILLIGRAM/SQ. METER, Q3WK
     Route: 042
     Dates: start: 20171212, end: 20180817
  18. EPIRUBICIN [Concomitant]
     Active Substance: EPIRUBICIN
     Indication: BREAST CANCER METASTATIC
     Dosage: 22.5 MILLIGRAM/SQ. METER, QW
     Route: 042
     Dates: start: 20200512, end: 20200820
  19. LEVOMEPROMAZINE [Concomitant]
     Active Substance: LEVOMEPROMAZINE
     Dosage: 3.13 MILLIGRAM
     Route: 058
  20. HALOPERIDOL. [Concomitant]
     Active Substance: HALOPERIDOL
     Indication: ABDOMINAL PAIN
     Dosage: 0.5 MG
     Route: 058
  21. HALOPERIDOL. [Concomitant]
     Active Substance: HALOPERIDOL
     Dosage: 0.5 MILLIGRAM
     Route: 058
  22. MIDAZOLAM. [Concomitant]
     Active Substance: MIDAZOLAM
     Indication: ABDOMINAL PAIN
     Dosage: 2.5 MG
     Route: 058
  23. CAPECITABINE. [Suspect]
     Active Substance: CAPECITABINE
     Dosage: 1950 MILLIGRAM, BID
     Route: 048
     Dates: start: 20180905, end: 20190327
  24. TRASTUZUMAB. [Suspect]
     Active Substance: TRASTUZUMAB
     Indication: BREAST CANCER METASTATIC
     Dosage: 567 MILLIGRAM, TOTAL(LOADING DOSE DOSE MODIFIED AS SWITCHED TO MAINTANANCE DOSE)
     Route: 042
     Dates: start: 20160722, end: 20160722
  25. ERIBULIN MESYLATE [Suspect]
     Active Substance: ERIBULIN MESYLATE
     Indication: BREAST CANCER METASTATIC
     Dosage: 1.23 MILLIGRAM/SQ. METER, Q3W
     Route: 042
     Dates: start: 20190516, end: 20190516
  26. BENZYDAMINE [Concomitant]
     Active Substance: BENZYDAMINE
     Dosage: 0.15 PERCENT, QID
     Route: 048
  27. SODIUM CHLORIDE. [Concomitant]
     Active Substance: SODIUM CHLORIDE
     Indication: ABDOMINAL PAIN
     Dosage: 0.9 PERCENT
     Route: 042
     Dates: start: 20201215
  28. GABAPENTIN. [Concomitant]
     Active Substance: GABAPENTIN
     Indication: ABDOMINAL PAIN
     Dosage: 400 MILLIGRAM, TID
     Route: 048
     Dates: start: 20201215
  29. TRASTUZUMAB. [Suspect]
     Active Substance: TRASTUZUMAB
     Dosage: 3.6 MG/M2, Q3W
     Route: 042
     Dates: start: 20171212
  30. TRASTUZUMAB. [Suspect]
     Active Substance: TRASTUZUMAB
     Dosage: 3.6 MILLIGRAM/SQ. METER, Q3W
     Route: 042
     Dates: start: 20171212, end: 20180817
  31. ERIBULIN MESYLATE [Suspect]
     Active Substance: ERIBULIN MESYLATE
     Indication: BREAST CANCER METASTATIC
  32. XGEVA [Suspect]
     Active Substance: DENOSUMAB
     Indication: METASTASES TO BONE
     Dosage: 120 MILLIGRAM, Q3W
     Route: 042
     Dates: start: 20160721
  33. CLOTRIMAZOLE. [Concomitant]
     Active Substance: CLOTRIMAZOLE
     Indication: ABDOMINAL PAIN
     Dosage: 1 PERCENT
     Route: 061
     Dates: start: 20201216
  34. MIDAZOLAM. [Concomitant]
     Active Substance: MIDAZOLAM
     Dosage: 2.5 MILLIGRAM
     Route: 058
  35. CAPECITABINE. [Suspect]
     Active Substance: CAPECITABINE
     Indication: BREAST CANCER METASTATIC
  36. TRASTUZUMAB. [Suspect]
     Active Substance: TRASTUZUMAB
     Indication: HER2 POSITIVE BREAST CANCER
     Dosage: 420 MILLIGRAM, Q3W(DOSE MODIFIED AS ACCOUNT FOR WEIGHT CHANGE)
     Route: 042
     Dates: start: 20160812, end: 20161017
  37. LEVOMEPROMAZINE [Concomitant]
     Active Substance: LEVOMEPROMAZINE
     Indication: ABDOMINAL PAIN
     Dosage: 3.13 MG
     Route: 058
  38. OXYCODONE [Concomitant]
     Active Substance: OXYCODONE
     Dosage: 10 MILLIGRAM
     Route: 058
  39. PERTUZUMAB. [Suspect]
     Active Substance: PERTUZUMAB
     Indication: BREAST CANCER METASTATIC
     Dosage: 840 MILLIGRAM, TOTAL(LOADING DOSE DOSE MODIFIED AS SWITCHED TO MAINTENACE DOSE)
     Route: 042
     Dates: start: 20160721, end: 20160721
  40. TRASTUZUMAB EMTANSINE [Suspect]
     Active Substance: ADO-TRASTUZUMAB EMTANSINE
     Indication: BREAST CANCER METASTATIC
     Dosage: 3.6 MG/KG, TIW
     Route: 042
     Dates: start: 20171212
  41. SALBUTAMOL [Concomitant]
     Active Substance: ALBUTEROL
     Indication: DYSPNOEA
     Dosage: 100 UG, QID
     Route: 055
  42. SALBUTAMOL [Concomitant]
     Active Substance: ALBUTEROL
     Indication: DYSPNOEA
     Dosage: 100 MICROGRAM, QID
     Route: 055
  43. DOCETAXEL. [Suspect]
     Active Substance: DOCETAXEL
     Dosage: 190 MILLIGRAM, Q3W(DOSE DISCONTINUED AS PLANNED NUMBER OF CYCLES COMPLETED)
     Route: 042
     Dates: start: 20160902, end: 20161115
  44. GLYCOPYRRONIUM [Concomitant]
     Active Substance: GLYCOPYRRONIUM
     Indication: DYSPNOEA
     Dosage: 200 MILLIGRAM
     Route: 058
  45. AMLODIPINE [Concomitant]
     Active Substance: AMLODIPINE BESYLATE
     Indication: ABDOMINAL PAIN
     Dosage: 5 MILLIGRAM, QD
     Route: 048
     Dates: start: 20201217

REACTIONS (4)
  - Off label use [Unknown]
  - Intentional product use issue [Unknown]
  - Headache [Recovered/Resolved]
  - Pyrexia [Recovered/Resolved]

NARRATIVE: CASE EVENT DATE: 20190113
